FAERS Safety Report 4830426-3 (Version None)
Quarter: 2005Q4

REPORT INFORMATION
  Report Type: 
  Country: None (occurrence: None)
  Receive Date: 20051117
  Receipt Date: 20051109
  Transmission Date: 20060501
  Serious: Yes (Hospitalization)
  Sender: FDA-Public Use
  Company Number: US-ROCHE-424491

PATIENT
  Age: 58 Year
  Sex: Female
  Weight: 54.4 kg

DRUGS (2)
  1. BONIVA [Suspect]
     Indication: OSTEOPOROSIS
     Route: 048
     Dates: start: 20051001, end: 20051101
  2. LORCET-HD [Concomitant]
     Indication: PAIN
     Route: 048
     Dates: start: 20041115

REACTIONS (6)
  - CERVICAL VERTEBRAL FRACTURE [None]
  - FALL [None]
  - HALLUCINATION [None]
  - NIGHTMARE [None]
  - PAIN [None]
  - SPINAL FRACTURE [None]
